FAERS Safety Report 7369986-X (Version None)
Quarter: 2011Q1

REPORT INFORMATION
  Report Type: 
  Country: None (occurrence: None)
  Receive Date: 20110323
  Receipt Date: 20110309
  Transmission Date: 20110831
  Serious: Yes (Other)
  Sender: FDA-Public Use
  Company Number: PHEH2010US02429

PATIENT
  Sex: Female

DRUGS (4)
  1. GLEEVEC [Suspect]
     Indication: CHRONIC MYELOID LEUKAEMIA
     Dosage: 400 MG, QD
     Route: 048
     Dates: start: 20080229
  2. PROMETHAZINE [Concomitant]
     Indication: VOMITING
  3. REGLAN [Suspect]
     Indication: IMPAIRED GASTRIC EMPTYING
  4. PROMETHAZINE [Concomitant]
     Indication: NAUSEA

REACTIONS (5)
  - TARDIVE DYSKINESIA [None]
  - IMPAIRED GASTRIC EMPTYING [None]
  - NEOPLASM [None]
  - NAUSEA [None]
  - VOMITING [None]
